FAERS Safety Report 18355815 (Version 23)
Quarter: 2024Q2

REPORT INFORMATION
  Report Type: Report from Study
  Country: US (occurrence: US)
  Receive Date: 20201007
  Receipt Date: 20240521
  Transmission Date: 20240716
  Serious: Yes (Other)
  Sender: FDA-Public Use
  Company Number: US-SHIRE-US202032210

PATIENT
  Age: 16 Year
  Sex: Male

DRUGS (36)
  1. ADVATE [Suspect]
     Active Substance: ANTIHEMOPHILIC FACTOR, HUMAN RECOMBINANT
     Indication: Haemorrhage
     Dosage: 1395 INTERNATIONAL UNIT
     Route: 042
  2. ADVATE [Suspect]
     Active Substance: ANTIHEMOPHILIC FACTOR, HUMAN RECOMBINANT
     Indication: Haemorrhage
     Dosage: 1395 INTERNATIONAL UNIT
     Route: 042
  3. ADVATE [Suspect]
     Active Substance: ANTIHEMOPHILIC FACTOR, HUMAN RECOMBINANT
     Indication: Haemorrhage
     Dosage: 1395 INTERNATIONAL UNIT
     Route: 042
  4. ADVATE [Suspect]
     Active Substance: ANTIHEMOPHILIC FACTOR, HUMAN RECOMBINANT
     Dosage: 1411 INTERNATIONAL UNIT
     Route: 042
  5. ADVATE [Suspect]
     Active Substance: ANTIHEMOPHILIC FACTOR, HUMAN RECOMBINANT
     Dosage: 1411 INTERNATIONAL UNIT
     Route: 042
  6. ADVATE [Suspect]
     Active Substance: ANTIHEMOPHILIC FACTOR, HUMAN RECOMBINANT
     Dosage: 1411 INTERNATIONAL UNIT
     Route: 042
  7. ADVATE [Suspect]
     Active Substance: ANTIHEMOPHILIC FACTOR, HUMAN RECOMBINANT
     Dosage: 1254 INTERNATIONAL UNIT
     Route: 042
  8. ADVATE [Suspect]
     Active Substance: ANTIHEMOPHILIC FACTOR, HUMAN RECOMBINANT
     Dosage: 1254 INTERNATIONAL UNIT
     Route: 042
  9. ADVATE [Suspect]
     Active Substance: ANTIHEMOPHILIC FACTOR, HUMAN RECOMBINANT
     Dosage: 1254 INTERNATIONAL UNIT
     Route: 042
  10. ADVATE [Suspect]
     Active Substance: ANTIHEMOPHILIC FACTOR, HUMAN RECOMBINANT
     Dosage: 1568 INTERNATIONAL UNIT
     Route: 042
  11. ADVATE [Suspect]
     Active Substance: ANTIHEMOPHILIC FACTOR, HUMAN RECOMBINANT
     Dosage: 1568 INTERNATIONAL UNIT
     Route: 042
  12. ADVATE [Suspect]
     Active Substance: ANTIHEMOPHILIC FACTOR, HUMAN RECOMBINANT
     Dosage: 1568 INTERNATIONAL UNIT
     Route: 042
  13. ADVATE [Suspect]
     Active Substance: ANTIHEMOPHILIC FACTOR, HUMAN RECOMBINANT
     Dosage: 1625 INTERNATIONAL UNIT
     Route: 042
  14. ADVATE [Suspect]
     Active Substance: ANTIHEMOPHILIC FACTOR, HUMAN RECOMBINANT
     Dosage: 1625 INTERNATIONAL UNIT
     Route: 042
  15. ADVATE [Suspect]
     Active Substance: ANTIHEMOPHILIC FACTOR, HUMAN RECOMBINANT
     Dosage: 1625 INTERNATIONAL UNIT
     Route: 042
  16. ADVATE [Suspect]
     Active Substance: ANTIHEMOPHILIC FACTOR, HUMAN RECOMBINANT
     Dosage: 1400 INTERNATIONAL UNIT
     Route: 042
  17. ADVATE [Suspect]
     Active Substance: ANTIHEMOPHILIC FACTOR, HUMAN RECOMBINANT
     Dosage: 1400 INTERNATIONAL UNIT
     Route: 042
  18. ADVATE [Suspect]
     Active Substance: ANTIHEMOPHILIC FACTOR, HUMAN RECOMBINANT
     Dosage: 1400 INTERNATIONAL UNIT
     Route: 042
  19. ADVATE [Suspect]
     Active Substance: ANTIHEMOPHILIC FACTOR, HUMAN RECOMBINANT
     Dosage: 1348 INTERNATIONAL UNIT
     Route: 042
  20. ADVATE [Suspect]
     Active Substance: ANTIHEMOPHILIC FACTOR, HUMAN RECOMBINANT
     Dosage: 1348 INTERNATIONAL UNIT
     Route: 042
  21. ADVATE [Suspect]
     Active Substance: ANTIHEMOPHILIC FACTOR, HUMAN RECOMBINANT
     Dosage: 1348 INTERNATIONAL UNIT
     Route: 042
  22. ADVATE [Suspect]
     Active Substance: ANTIHEMOPHILIC FACTOR, HUMAN RECOMBINANT
     Dosage: 1685 INTERNATIONAL UNIT
     Route: 042
  23. ADVATE [Suspect]
     Active Substance: ANTIHEMOPHILIC FACTOR, HUMAN RECOMBINANT
     Dosage: 1685 INTERNATIONAL UNIT
     Route: 042
  24. ADVATE [Suspect]
     Active Substance: ANTIHEMOPHILIC FACTOR, HUMAN RECOMBINANT
     Dosage: 1685 INTERNATIONAL UNIT
     Route: 042
  25. ADVATE [Suspect]
     Active Substance: ANTIHEMOPHILIC FACTOR, HUMAN RECOMBINANT
     Dosage: 2022 INTERNATIONAL UNIT
     Route: 042
  26. ADVATE [Suspect]
     Active Substance: ANTIHEMOPHILIC FACTOR, HUMAN RECOMBINANT
     Dosage: 2022 INTERNATIONAL UNIT
     Route: 042
  27. ADVATE [Suspect]
     Active Substance: ANTIHEMOPHILIC FACTOR, HUMAN RECOMBINANT
     Dosage: 2022 INTERNATIONAL UNIT
     Route: 042
  28. ADVATE [Suspect]
     Active Substance: ANTIHEMOPHILIC FACTOR, HUMAN RECOMBINANT
     Dosage: 1384 INTERNATIONAL UNIT
     Route: 042
  29. ADVATE [Suspect]
     Active Substance: ANTIHEMOPHILIC FACTOR, HUMAN RECOMBINANT
     Dosage: 1384 INTERNATIONAL UNIT
     Route: 042
  30. ADVATE [Suspect]
     Active Substance: ANTIHEMOPHILIC FACTOR, HUMAN RECOMBINANT
     Dosage: 1384 INTERNATIONAL UNIT
     Route: 042
  31. ADVATE [Suspect]
     Active Substance: ANTIHEMOPHILIC FACTOR, HUMAN RECOMBINANT
     Dosage: 2696 INTERNATIONAL UNIT
     Route: 042
  32. ADVATE [Suspect]
     Active Substance: ANTIHEMOPHILIC FACTOR, HUMAN RECOMBINANT
     Dosage: 2696 INTERNATIONAL UNIT
     Route: 042
  33. ADVATE [Suspect]
     Active Substance: ANTIHEMOPHILIC FACTOR, HUMAN RECOMBINANT
     Dosage: 2696 INTERNATIONAL UNIT
     Route: 042
  34. ADVATE [Suspect]
     Active Substance: ANTIHEMOPHILIC FACTOR, HUMAN RECOMBINANT
     Dosage: 4044 INTERNATIONAL UNIT
     Route: 042
  35. ADVATE [Suspect]
     Active Substance: ANTIHEMOPHILIC FACTOR, HUMAN RECOMBINANT
     Dosage: 4044 INTERNATIONAL UNIT
     Route: 042
  36. ADVATE [Suspect]
     Active Substance: ANTIHEMOPHILIC FACTOR, HUMAN RECOMBINANT
     Dosage: 4044 INTERNATIONAL UNIT
     Route: 042

REACTIONS (17)
  - Haemorrhage [Recovered/Resolved]
  - Haemarthrosis [Recovered/Resolved]
  - Testicular haemorrhage [Not Recovered/Not Resolved]
  - Contusion [Unknown]
  - Epistaxis [Recovered/Resolved]
  - Muscle haemorrhage [Recovered/Resolved]
  - Limb mass [Unknown]
  - Mobility decreased [Unknown]
  - Joint injury [Unknown]
  - Trunk injury [Unknown]
  - Tympanic membrane perforation [Unknown]
  - Pain in extremity [Recovered/Resolved]
  - Face injury [Recovered/Resolved]
  - Arthralgia [Recovered/Resolved]
  - Incorrect dose administered [Unknown]
  - Product dose omission issue [Unknown]
  - Product use issue [Unknown]

NARRATIVE: CASE EVENT DATE: 20200902
